FAERS Safety Report 25891013 (Version 1)
Quarter: 2025Q4

REPORT INFORMATION
  Report Type: Spontaneous
  Country: US (occurrence: None)
  Receive Date: 20251007
  Receipt Date: 20251007
  Transmission Date: 20260118
  Serious: Yes (Hospitalization)
  Sender: FDA-CTU
  Company Number: None

PATIENT
  Age: 58 Year
  Sex: Male

DRUGS (6)
  1. VYNDAMAX [Suspect]
     Active Substance: TAFAMIDIS
     Indication: Amyloidosis
     Dosage: FREQUENCY : DAILY;?
     Route: 048
     Dates: start: 20250616
  2. ASPIRIN [Concomitant]
     Active Substance: ASPIRIN
  3. JARDIANCE [Concomitant]
     Active Substance: EMPAGLIFLOZIN
  4. MULTIVITAMIN TAB ADULTS [Concomitant]
  5. TORSEMIDE TAB 100MG [Concomitant]
  6. VYNDAMAX [Concomitant]
     Active Substance: TAFAMIDIS

REACTIONS (1)
  - Heart transplant [None]

NARRATIVE: CASE EVENT DATE: 20250930
